FAERS Safety Report 15652200 (Version 1)
Quarter: 2018Q4

REPORT INFORMATION
  Report Type: Spontaneous
  Country: US (occurrence: US)
  Receive Date: 20181123
  Receipt Date: 20181123
  Transmission Date: 20190205
  Serious: No
  Sender: FDA-Public Use
  Company Number: US-TEVA-2018-US-980808

PATIENT
  Age: 12 Year
  Sex: Female

DRUGS (4)
  1. MELATONIN [Concomitant]
     Active Substance: MELATONIN
     Indication: SLEEP DISORDER
     Dosage: 20 MILLIGRAM DAILY;
     Route: 048
  2. METHYLPHENIDATE ACTAVIS [Suspect]
     Active Substance: METHYLPHENIDATE
     Indication: ATTENTION DEFICIT/HYPERACTIVITY DISORDER
     Route: 048
  3. METHYLPHENIDATE ACTAVIS [Suspect]
     Active Substance: METHYLPHENIDATE
     Dosage: QAM
     Route: 048
     Dates: end: 201807
  4. PROZAC [Concomitant]
     Active Substance: FLUOXETINE HYDROCHLORIDE
     Indication: ANXIETY
     Dosage: 10 MILLIGRAM DAILY;

REACTIONS (2)
  - Decreased appetite [Unknown]
  - Insomnia [Unknown]
